FAERS Safety Report 24374113 (Version 1)
Quarter: 2024Q3

REPORT INFORMATION
  Report Type: Spontaneous
  Country: GB (occurrence: GB)
  Receive Date: 20240927
  Receipt Date: 20240927
  Transmission Date: 20241017
  Serious: Yes (Other)
  Sender: SANDOZ
  Company Number: None

PATIENT
  Age: 55 Year
  Sex: Female

DRUGS (1)
  1. ATORVASTATIN [Suspect]
     Active Substance: ATORVASTATIN
     Indication: Adverse drug reaction
     Dosage: 10 MG
     Route: 065
     Dates: start: 20240819, end: 20240828

REACTIONS (6)
  - Brain fog [Recovering/Resolving]
  - Musculoskeletal chest pain [Recovered/Resolved with Sequelae]
  - Myalgia [Recovered/Resolved with Sequelae]
  - Fatigue [Recovered/Resolved with Sequelae]
  - Back pain [Recovering/Resolving]
  - Paraesthesia [Recovered/Resolved with Sequelae]
